FAERS Safety Report 16297784 (Version 2)
Quarter: 2019Q2

REPORT INFORMATION
  Report Type: Report from Study
  Country: US (occurrence: US)
  Receive Date: 20190510
  Receipt Date: 20190523
  Transmission Date: 20190711
  Serious: Yes (Other)
  Sender: FDA-Public Use
  Company Number: PHEH2019US019891

PATIENT
  Sex: Male

DRUGS (5)
  1. COSENTYX [Suspect]
     Active Substance: SECUKINUMAB
     Dosage: 300 MG, QMO(300MG 4 DAYS IN A ROW BEFORE THEY NOTICED IT WAS ONCE A WEEK)
     Route: 058
  2. COSENTYX [Suspect]
     Active Substance: SECUKINUMAB
     Indication: PRODUCT USED FOR UNKNOWN INDICATION
     Dosage: UNK
     Route: 065
  3. COSENTYX [Suspect]
     Active Substance: SECUKINUMAB
     Dosage: 300 MG, QMO(300MG 4 DAYS IN A ROW BEFORE THEY NOTICED IT WAS ONCE A WEEK)
     Route: 058
  4. COSENTYX [Suspect]
     Active Substance: SECUKINUMAB
     Dosage: 300 MG, QMO(300MG 4 DAYS IN A ROW BEFORE THEY NOTICED IT WAS ONCE A WEEK)
     Route: 058
  5. COSENTYX [Suspect]
     Active Substance: SECUKINUMAB
     Dosage: 300 MG, QMO(300MG 4 DAYS IN A ROW BEFORE THEY NOTICED IT WAS ONCE A WEEK)
     Route: 058

REACTIONS (2)
  - Inappropriate schedule of product administration [Unknown]
  - End stage renal disease [Unknown]
